FAERS Safety Report 22005628 (Version 1)
Quarter: 2023Q1

REPORT INFORMATION
  Report Type: Spontaneous
  Country: FR (occurrence: FR)
  Receive Date: 20230217
  Receipt Date: 20230217
  Transmission Date: 20230418
  Serious: Yes (Hospitalization)
  Sender: FDA-Public Use
  Company Number: None

PATIENT
  Age: 56 Year
  Sex: Male

DRUGS (3)
  1. PIPERACILLIN SODIUM\TAZOBACTAM SODIUM [Suspect]
     Active Substance: PIPERACILLIN SODIUM\TAZOBACTAM SODIUM
     Indication: Infection
     Dosage: UNK
     Route: 048
     Dates: start: 20230106, end: 20230106
  2. ZOVIRAX [Suspect]
     Active Substance: ACYCLOVIR
     Indication: Infection
     Dosage: 600 MG, 3X/DAY
     Route: 048
     Dates: start: 20230106, end: 20230111
  3. LEVOFLOXACIN [Suspect]
     Active Substance: LEVOFLOXACIN
     Indication: Infection
     Dosage: 500 MG
     Route: 048
     Dates: start: 20230107, end: 20230111

REACTIONS (2)
  - Encephalopathy [Recovered/Resolved]
  - Off label use [Unknown]

NARRATIVE: CASE EVENT DATE: 20230106
